FAERS Safety Report 13570119 (Version 1)
Quarter: 2017Q2

REPORT INFORMATION
  Report Type: Spontaneous
  Country: US (occurrence: US)
  Receive Date: 20170522
  Receipt Date: 20170522
  Transmission Date: 20170830
  Serious: Yes (Hospitalization)
  Sender: FDA-Public Use
  Company Number: US-ELI_LILLY_AND_COMPANY-US201705005300

PATIENT
  Age: 77 Year
  Sex: Male

DRUGS (4)
  1. ALIMTA [Suspect]
     Active Substance: PEMETREXED DISODIUM
     Dosage: 750 MG, UNKNOWN
     Route: 065
     Dates: start: 20150819, end: 20151021
  2. ALIMTA [Suspect]
     Active Substance: PEMETREXED DISODIUM
     Indication: NON-SMALL CELL LUNG CANCER
     Dosage: 950 MG, UNKNOWN
     Route: 065
     Dates: start: 20150415, end: 20150818
  3. AVASTIN [Concomitant]
     Active Substance: BEVACIZUMAB
     Indication: NON-SMALL CELL LUNG CANCER
     Dosage: UNK, UNKNOWN
     Route: 065
     Dates: start: 20150415, end: 20150617
  4. CARBOPLATIN. [Concomitant]
     Active Substance: CARBOPLATIN
     Indication: NON-SMALL CELL LUNG CANCER
     Dosage: UNK, UNKNOWN
     Route: 065
     Dates: start: 20150415, end: 20150819

REACTIONS (6)
  - Off label use [Unknown]
  - Arthralgia [Unknown]
  - Chest discomfort [Unknown]
  - Blood creatinine increased [Unknown]
  - Protein urine present [Unknown]
  - Infection [Unknown]

NARRATIVE: CASE EVENT DATE: 20150415
